FAERS Safety Report 13169555 (Version 1)
Quarter: 2017Q1

REPORT INFORMATION
  Report Type: Spontaneous
  Country: US (occurrence: US)
  Receive Date: 20170131
  Receipt Date: 20170131
  Transmission Date: 20170428
  Serious: No
  Sender: FDA-Public Use
  Company Number: US-ABBVIE-16K-163-1600265-00

PATIENT
  Sex: Female

DRUGS (1)
  1. HUMIRA [Suspect]
     Active Substance: ADALIMUMAB
     Indication: PRODUCT USED FOR UNKNOWN INDICATION
     Route: 058

REACTIONS (7)
  - Injection site injury [Unknown]
  - Adverse drug reaction [Unknown]
  - Injection site pain [Unknown]
  - Drug dose omission [Unknown]
  - Malaise [Unknown]
  - Feeling abnormal [Unknown]
  - Incorrect dose administered [Unknown]
